FAERS Safety Report 12479213 (Version 1)
Quarter: 2016Q2

REPORT INFORMATION
  Report Type: Spontaneous
  Country: US (occurrence: None)
  Receive Date: 20160617
  Receipt Date: 20160617
  Transmission Date: 20160815
  Serious: No
  Sender: FDA-Public Use
  Company Number: None

PATIENT
  Age: 73 Year
  Sex: Male

DRUGS (9)
  1. VITAMIN B12 [Concomitant]
     Active Substance: CYANOCOBALAMIN
  2. CRESTOR [Concomitant]
     Active Substance: ROSUVASTATIN CALCIUM
  3. MAMENDA [Concomitant]
  4. DONEPEZIL. [Concomitant]
     Active Substance: DONEPEZIL
  5. RAMIPRIL. [Concomitant]
     Active Substance: RAMIPRIL
  6. GLIPIZIDE. [Concomitant]
     Active Substance: GLIPIZIDE
  7. COREG [Concomitant]
     Active Substance: CARVEDILOL
  8. ENTRESTO [Suspect]
     Active Substance: SACUBITRIL\VALSARTAN
     Indication: CARDIAC FAILURE
     Route: 048
  9. METFORMIN [Concomitant]
     Active Substance: METFORMIN HYDROCHLORIDE

REACTIONS (2)
  - Diarrhoea [None]
  - Blood glucose increased [None]

NARRATIVE: CASE EVENT DATE: 20160615
